FAERS Safety Report 9278098 (Version 1)
Quarter: 2013Q2

REPORT INFORMATION
  Report Type: Spontaneous
  Country: US (occurrence: US)
  Receive Date: 20130508
  Receipt Date: 20130508
  Transmission Date: 20140414
  Serious: Yes (Hospitalization)
  Sender: FDA-Public Use
  Company Number: US-NOVOPROD-377146

PATIENT
  Age: 17 Year
  Sex: Female
  Weight: 95.4 kg

DRUGS (6)
  1. NORDITROPIN FLEXPRO 10 MG/ML [Suspect]
     Indication: HYPOPITUITARISM
     Dosage: 2.2 MG QD
     Route: 058
  2. NORDITROPIN FLEXPRO 10 MG/ML [Suspect]
     Dosage: 1 MG QD
     Route: 058
  3. ESTROGEN [Concomitant]
     Indication: SECONDARY HYPOGONADISM
     Dosage: UNKNOWN
     Route: 065
  4. LEVOTHYROXINE [Concomitant]
     Indication: HYPOTHYROIDISM
     Dosage: UNKNOWN
     Route: 065
  5. DDAVP                              /00361901/ [Concomitant]
     Indication: DIABETES INSIPIDUS
     Dosage: UNKNOWN
     Route: 065
  6. FISH OIL [Concomitant]
     Indication: BLOOD CHOLESTEROL INCREASED
     Dosage: UNKNOWN
     Route: 065

REACTIONS (1)
  - Haemorrhage intracranial [Not Recovered/Not Resolved]
